FAERS Safety Report 5746816-0 (Version None)
Quarter: 2008Q2

REPORT INFORMATION
  Report Type: 
  Country: None (occurrence: None)
  Receive Date: 20080522
  Receipt Date: 20080515
  Transmission Date: 20081010
  Serious: Yes (Hospitalization)
  Sender: FDA-Public Use
  Company Number: FR-PFIZER INC-2008042596

PATIENT
  Sex: Female

DRUGS (11)
  1. XANAX [Suspect]
     Route: 048
  2. PRIMPERAN TAB [Suspect]
     Dosage: TEXT:1 DF
     Route: 048
  3. NEXIUM [Suspect]
     Dosage: TEXT:1 DF
     Route: 048
  4. PROPOFAN [Suspect]
     Dosage: TEXT:6 DF
     Route: 048
  5. VASTEN [Suspect]
     Route: 048
  6. PLAVIX [Suspect]
     Dosage: TEXT:1 DF
     Route: 048
  7. DOMPERIDONE [Suspect]
     Route: 048
  8. FONZYLANE [Suspect]
     Route: 048
  9. COAPROVEL [Concomitant]
     Dosage: TEXT:1 DF
     Route: 048
  10. HYPERIUM [Concomitant]
     Dosage: TEXT:2 DF
     Route: 048
  11. LEVOTHYROXINE SODIUM [Concomitant]
     Indication: HYPOTHYROIDISM
     Dosage: TEXT:1 DF
     Route: 048

REACTIONS (1)
  - AGRANULOCYTOSIS [None]
